FAERS Safety Report 21873793 (Version 2)
Quarter: 2023Q1

REPORT INFORMATION
  Report Type: Spontaneous
  Country: US (occurrence: US)
  Receive Date: 20230117
  Receipt Date: 20230314
  Transmission Date: 20230417
  Serious: Yes (Other)
  Sender: FDA-Public Use
  Company Number: US-ELI_LILLY_AND_COMPANY-US202301003626

PATIENT

DRUGS (1)
  1. INSULIN LISPRO [Suspect]
     Active Substance: INSULIN LISPRO
     Indication: Product used for unknown indication
     Dosage: 10 U, SINGLE
     Route: 023

REACTIONS (4)
  - Blood glucose decreased [Recovered/Resolved]
  - Wrong product administered [Unknown]
  - Incorrect route of product administration [Unknown]
  - Wrong patient [Unknown]
